FAERS Safety Report 24562035 (Version 4)
Quarter: 2025Q1

REPORT INFORMATION
  Report Type: Spontaneous
  Country: US (occurrence: None)
  Receive Date: 20241029
  Receipt Date: 20250327
  Transmission Date: 20250409
  Serious: No
  Sender: INCYTE
  Company Number: US-INCYTE CORPORATION-2024IN010825

PATIENT

DRUGS (3)
  1. OPZELURA [Suspect]
     Active Substance: RUXOLITINIB PHOSPHATE
     Indication: Dermatitis atopic
     Dosage: UNK, BID
     Route: 065
  2. OPZELURA [Suspect]
     Active Substance: RUXOLITINIB PHOSPHATE
     Dosage: UNK, BID
     Route: 065
  3. OPZELURA [Suspect]
     Active Substance: RUXOLITINIB PHOSPHATE
     Dosage: UNK, BID

REACTIONS (5)
  - Dermatitis atopic [Not Recovered/Not Resolved]
  - Product availability issue [Not Recovered/Not Resolved]
  - Application site fissure [Unknown]
  - Hypersensitivity [Not Recovered/Not Resolved]
  - Application site pruritus [Unknown]
